FAERS Safety Report 21287195 (Version 4)
Quarter: 2022Q3

REPORT INFORMATION
  Report Type: Spontaneous
  Country: US (occurrence: US)
  Receive Date: 20220902
  Receipt Date: 20220920
  Transmission Date: 20221026
  Serious: Yes (Other)
  Sender: FDA-Public Use
  Company Number: US-PFIZER INC-PV202200041397

PATIENT
  Age: 79 Year
  Sex: Female
  Weight: 81.361 kg

DRUGS (5)
  1. TOVIAZ [Suspect]
     Active Substance: FESOTERODINE FUMARATE
     Indication: Hypertonic bladder
     Dosage: 8 MG, 2X/DAY (TAKE 1 TABLET BY MOUTH TWICE DAILY, TOTAL- 180)
     Route: 048
  2. TOVIAZ [Suspect]
     Active Substance: FESOTERODINE FUMARATE
     Dosage: 8 MG, 1X/DAY
     Route: 048
  3. PREMARIN [Concomitant]
     Active Substance: ESTROGENS, CONJUGATED
     Dosage: 0.5 G, THREE TIMES WEEKLY
     Route: 067
  4. NEURONTIN [Concomitant]
     Active Substance: GABAPENTIN
     Dosage: 300 MG, 2X/DAY
     Route: 048
  5. GABAPENTIN [Concomitant]
     Active Substance: GABAPENTIN
     Dosage: 1 DF, 1X/DAY

REACTIONS (7)
  - Adnexa uteri mass [Unknown]
  - Urinary tract infection bacterial [Unknown]
  - Vulvovaginal pain [Unknown]
  - Swelling [Unknown]
  - Pelvic pain [Unknown]
  - Drug ineffective [Unknown]
  - Off label use [Unknown]
